FAERS Safety Report 5149723-X (Version None)
Quarter: 2006Q4

REPORT INFORMATION
  Report Type: 
  Country: None (occurrence: None)
  Receive Date: 20061113
  Receipt Date: 20061109
  Transmission Date: 20070319
  Serious: Yes (Death, Other)
  Sender: FDA-Public Use
  Company Number: AU-NOVOPROD-258429

PATIENT
  Age: 64 Year
  Sex: Male
  Weight: 67 kg

DRUGS (12)
  1. NOVOSEVEN [Suspect]
     Indication: HAEMORRHAGE
     Dosage: 7.2 MG, QD
     Dates: start: 20050920
  2. PROTAMINE SULFATE [Concomitant]
     Dosage: BEFORE RFVIIA DOSE
  3. HEPARIN [Concomitant]
     Dosage: BEFORE RFVIIA DOSE
  4. BLOOD CELLS, PACKED HUMAN [Concomitant]
     Dosage: 24 HRS PRE RFVIIA ADMINISTRATION
  5. BLOOD CELLS, PACKED HUMAN [Concomitant]
     Dosage: 24 HRS POST RFVIIA ADMINISTRATION
  6. FRESH FROZEN PLASMA [Concomitant]
     Dosage: 24 HRS PRE RFVIIA ADMINISTRATION
  7. FRESH FROZEN PLASMA [Concomitant]
     Dosage: 24 HRS POST RFVIIA ADMINISTRATION
  8. CRYOPRECIPITATES [Concomitant]
     Dosage: 24 HRS POST RFVIIA ADMINISTRATION
  9. PLATELETS [Concomitant]
     Dosage: 24 HRS PRE RFVIIA ADMINISTRATION
  10. PLATELETS [Concomitant]
     Dosage: 24 HRS POST RFVIIA ADMINISTRATION
  11. GELOFUSINE                         /00203801/ [Concomitant]
     Dosage: 24 HRS PRE RFVIIA ADMINISTRATION
  12. ALBUMEX 5 [Concomitant]
     Dosage: 24 HRS POST RFVIIA ADMINISTRATION.

REACTIONS (1)
  - ARTERIAL THROMBOSIS [None]
